FAERS Safety Report 8017199-0 (Version None)
Quarter: 2012Q1

REPORT INFORMATION
  Report Type: 
  Country: None (occurrence: None)
  Receive Date: 20120102
  Receipt Date: 20111224
  Transmission Date: 20120608
  Serious: Yes (Other)
  Sender: FDA-Public Use
  Company Number: PHEH2011US009343

PATIENT
  Sex: Male

DRUGS (14)
  1. LYRICA [Suspect]
     Dosage: 25 MG, QD
  2. OXYCODONE HYDROCHLORIDE [Suspect]
     Indication: BONE PAIN
     Dosage: 5 MG, UNK
  3. OXYCONTIN [Suspect]
     Indication: PAIN
     Dosage: 30 MG, BID
  4. PERCOCET [Suspect]
     Dosage: 1 DF (5/325MG), UNK
  5. CITALOPRAM HYDROBROMIDE [Suspect]
     Dosage: 20 MG, QD
     Route: 048
  6. GABAPENTIN [Suspect]
     Dosage: UNK
  7. CYMBALTA [Suspect]
     Dosage: 60 MG, QD
  8. DIOVAN HCT [Suspect]
     Dosage: 1 DF (320/12.5MG), QD
  9. FEXOFENADINE [Suspect]
     Dosage: 180 MG, QD
  10. LEXAPRO [Suspect]
     Dosage: 10 MG, QD
  11. DIOVAN HCT [Suspect]
     Dosage: 1 DF, QD
  12. MORPHINE [Suspect]
     Indication: PAIN
     Dosage: 30 MG, TID
  13. CYMBALTA [Suspect]
     Indication: PAIN
     Dosage: 30 MG, QD
  14. EFFEXOR [Suspect]
     Dosage: UNK

REACTIONS (15)
  - SLEEP DISORDER [None]
  - HEPATIC ENZYME ABNORMAL [None]
  - OCULAR DISCOMFORT [None]
  - LIMB DISCOMFORT [None]
  - NIGHTMARE [None]
  - SCIATICA [None]
  - ATROPHY [None]
  - MALAISE [None]
  - DRUG INEFFECTIVE [None]
  - FEELING ABNORMAL [None]
  - MUSCLE SPASMS [None]
  - BLOOD PRESSURE INADEQUATELY CONTROLLED [None]
  - MEMORY IMPAIRMENT [None]
  - ABDOMINAL DISCOMFORT [None]
  - ANXIETY [None]
